FAERS Safety Report 19624734 (Version 1)
Quarter: 2021Q3

REPORT INFORMATION
  Report Type: Report from Study
  Country: MA (occurrence: MA)
  Receive Date: 20210728
  Receipt Date: 20210728
  Transmission Date: 20211014
  Serious: Yes (Other)
  Sender: FDA-Public Use
  Company Number: NVSC2021MA156401

PATIENT
  Sex: Female

DRUGS (2)
  1. COSENTYX [Suspect]
     Active Substance: SECUKINUMAB
     Indication: ANKYLOSING SPONDYLITIS
     Dosage: 150 MG, QMO
     Route: 058
     Dates: start: 20200210
  2. DECAPEPTYL [Concomitant]
     Indication: ENDOMETRIOSIS
     Dosage: UNK UNK, UNKNOWN
     Route: 065

REACTIONS (4)
  - Vitamin D decreased [Unknown]
  - Cardiovascular insufficiency [Unknown]
  - Peripheral swelling [Unknown]
  - Haemorrhage [Unknown]
